FAERS Safety Report 24584200 (Version 2)
Quarter: 2024Q4

REPORT INFORMATION
  Report Type: Spontaneous
  Country: US (occurrence: US)
  Receive Date: 20241106
  Receipt Date: 20241119
  Transmission Date: 20250115
  Serious: No
  Sender: VIFOR (INTERNATIONAL) INC.
  Company Number: US-Vifor (International) Inc.-VIT-2024-09620

PATIENT
  Age: 71 Year
  Sex: Female
  Weight: 53 kg

DRUGS (4)
  1. MIRCERA [Suspect]
     Active Substance: METHOXY POLYETHYLENE GLYCOL-EPOETIN BETA
     Indication: Anaemia
     Dosage: ON 16.APR.2024, MIRCERA DOSE NUMBER: 23. DOSE CATEGORY: DOSE 21-30 PLUS.?13-FEB-2024, THE LAST DOSE
     Route: 040
     Dates: start: 20231114, end: 20240416
  2. HECTOROL [Concomitant]
     Active Substance: DOXERCALCIFEROL
  3. DOXERCALCIFEROL [Concomitant]
     Active Substance: DOXERCALCIFEROL
     Indication: Hyperparathyroidism
     Route: 040
     Dates: start: 20240222
  4. HEPARIN [Concomitant]
     Active Substance: HEPARIN SODIUM
     Indication: Coagulopathy
     Route: 040
     Dates: start: 20230309, end: 20240709

REACTIONS (3)
  - Drug hypersensitivity [Recovered/Resolved]
  - Abdominal pain [Recovered/Resolved]
  - Asthenia [Recovered/Resolved]

NARRATIVE: CASE EVENT DATE: 20240401
